FAERS Safety Report 6793352-9 (Version None)
Quarter: 2010Q2

REPORT INFORMATION
  Report Type: 
  Country: None (occurrence: None)
  Receive Date: 20100624
  Receipt Date: 20100415
  Transmission Date: 20101027
  Serious: Yes (Other)
  Sender: FDA-Public Use
  Company Number: US-MYLANLABS-2009S1021626

PATIENT
  Age: 55 Year
  Sex: Female
  Weight: 57.15 kg

DRUGS (10)
  1. CLOZAPINE [Suspect]
     Indication: SCHIZOAFFECTIVE DISORDER
     Dates: start: 19940101, end: 20100310
  2. ATIVAN [Concomitant]
  3. REMERON [Concomitant]
  4. MELATONIN [Concomitant]
  5. LUNESTA [Concomitant]
  6. STOOL SOFTENER [Concomitant]
  7. MULTI-VITAMIN [Concomitant]
  8. VITAMIN D [Concomitant]
  9. SYNTHROID [Concomitant]
  10. DENTA 5000 PLUS [Concomitant]

REACTIONS (2)
  - GRANULOCYTOPENIA [None]
  - LEUKOPENIA [None]
